FAERS Safety Report 7179800-3 (Version None)
Quarter: 2010Q4

REPORT INFORMATION
  Report Type: 
  Country: None (occurrence: None)
  Receive Date: 20101221
  Receipt Date: 20101208
  Transmission Date: 20110411
  Serious: Yes (Hospitalization, Other)
  Sender: FDA-Public Use
  Company Number: US-ROCHE-727251

PATIENT
  Sex: Male
  Weight: 72.6 kg

DRUGS (7)
  1. ACCUTANE [Suspect]
     Route: 065
     Dates: start: 19990901, end: 20020301
  2. ACCUTANE [Suspect]
     Route: 065
     Dates: start: 20031201, end: 20040101
  3. ACCUTANE [Suspect]
     Route: 065
     Dates: start: 20050202
  4. ACCUTANE [Suspect]
     Route: 065
     Dates: start: 20050606
  5. CLARAVIS [Suspect]
     Route: 065
     Dates: start: 20031202
  6. CLARAVIS [Suspect]
     Route: 065
     Dates: start: 20050202
  7. CLARAVIS [Suspect]
     Route: 065
     Dates: start: 20060114

REACTIONS (7)
  - COLONIC POLYP [None]
  - CROHN'S DISEASE [None]
  - DRY EYE [None]
  - GASTROINTESTINAL INJURY [None]
  - INFLAMMATORY BOWEL DISEASE [None]
  - LIP DRY [None]
  - PERINEAL FISTULA [None]
